FAERS Safety Report 25099355 (Version 1)
Quarter: 2025Q1

REPORT INFORMATION
  Report Type: Spontaneous
  Country: US (occurrence: US)
  Receive Date: 20250320
  Receipt Date: 20250320
  Transmission Date: 20250409
  Serious: Yes (Other)
  Sender: CSL BEHRING
  Company Number: US-BEH-2025199114

PATIENT
  Age: 5 Decade
  Sex: Male

DRUGS (2)
  1. AFSTYLA ANTIHEMOPHILIC FACTOR (RECOMBINANT), SINGLE CHAIN [Suspect]
     Active Substance: LONOCTOCOG ALFA
     Indication: Prophylaxis
     Route: 065
  2. AFSTYLA ANTIHEMOPHILIC FACTOR (RECOMBINANT), SINGLE CHAIN [Suspect]
     Active Substance: LONOCTOCOG ALFA
     Indication: Prophylaxis
     Route: 065

REACTIONS (3)
  - Haemorrhage [Unknown]
  - Limb injury [Unknown]
  - Product dose omission issue [Unknown]

NARRATIVE: CASE EVENT DATE: 20250301
